FAERS Safety Report 25298752 (Version 2)
Quarter: 2025Q3

REPORT INFORMATION
  Report Type: Spontaneous
  Country: EU (occurrence: EU)
  Receive Date: 20250512
  Receipt Date: 20250710
  Transmission Date: 20251021
  Serious: Yes (Hospitalization)
  Sender: Unknown Manufacturer
  Company Number: EU-MENARINI-ES-MEN-113671

PATIENT

DRUGS (6)
  1. ORITAVANCIN [Suspect]
     Active Substance: ORITAVANCIN
     Indication: Bacteraemia
     Route: 042
     Dates: start: 20250416, end: 20250416
  2. ORITAVANCIN [Suspect]
     Active Substance: ORITAVANCIN
     Indication: Arthritis infective
  3. ENOXAPARIN [Concomitant]
     Active Substance: ENOXAPARIN
     Route: 058
     Dates: start: 20250321
  4. SIMVASTATIN [Concomitant]
     Active Substance: SIMVASTATIN
     Dosage: 40 MILLIGRAM, QD
     Route: 048
  5. ACETAMINOPHEN [Concomitant]
     Active Substance: ACETAMINOPHEN
     Route: 048
  6. ENALAPRIL [Concomitant]
     Active Substance: ENALAPRIL
     Route: 048

REACTIONS (8)
  - Arthralgia [Recovered/Resolved]
  - Tachypnoea [Recovered/Resolved]
  - Poor peripheral circulation [Recovered/Resolved]
  - Cyanosis [Recovered/Resolved]
  - Skin lesion [Recovered/Resolved]
  - Pyrexia [Recovered/Resolved]
  - Malaise [Recovered/Resolved]
  - Tremor [Recovered/Resolved]

NARRATIVE: CASE EVENT DATE: 20250416
